FAERS Safety Report 9496142 (Version 1)
Quarter: 2013Q3

REPORT INFORMATION
  Report Type: Spontaneous
  Country: FR (occurrence: FR)
  Receive Date: 20130904
  Receipt Date: 20130904
  Transmission Date: 20140515
  Serious: Yes (Hospitalization)
  Sender: FDA-Public Use
  Company Number: FR-ROCHE-1269533

PATIENT
  Age: 49 Year
  Sex: Female

DRUGS (4)
  1. ZELBORAF [Suspect]
     Indication: MALIGNANT MELANOMA
     Route: 048
     Dates: start: 20121015
  2. DEPAKOTE [Suspect]
     Indication: MENTAL DISORDER
     Route: 048
     Dates: start: 200903
  3. DEXERYL (FRANCE) [Suspect]
     Indication: PRODUCT USED FOR UNKNOWN INDICATION
     Route: 065
  4. MUPHORAN [Suspect]
     Indication: MALIGNANT MELANOMA
     Route: 065
     Dates: start: 20130418

REACTIONS (4)
  - Sunburn [Recovered/Resolved]
  - Lip oedema [Recovered/Resolved]
  - Face oedema [Recovered/Resolved]
  - Photosensitivity reaction [Recovered/Resolved]
